FAERS Safety Report 17243834 (Version 4)
Quarter: 2020Q3

REPORT INFORMATION
  Report Type: Report from Study
  Country: US (occurrence: US)
  Receive Date: 20200107
  Receipt Date: 20200715
  Transmission Date: 20201102
  Serious: Yes (Hospitalization)
  Sender: FDA-Public Use
  Company Number: US-JNJFOC-20200105592

PATIENT
  Age: 21 Year
  Sex: Female
  Weight: 41.6 kg

DRUGS (12)
  1. LOPERAMIDE [Concomitant]
     Active Substance: LOPERAMIDE
  2. SIROLIMUS. [Concomitant]
     Active Substance: SIROLIMUS
  3. IRON DEXTRAN [Concomitant]
     Active Substance: IRON DEXTRAN
  4. CYANOCOBALAMIN. [Concomitant]
     Active Substance: CYANOCOBALAMIN
  5. STELARA [Concomitant]
     Active Substance: USTEKINUMAB
  6. INFLIXIMAB, RECOMBINANT [Suspect]
     Active Substance: INFLIXIMAB
     Indication: INFLAMMATORY BOWEL DISEASE
     Route: 042
     Dates: start: 20120731, end: 20130717
  7. HEPARIN [Concomitant]
     Active Substance: HEPARIN SODIUM
  8. BUDESONIDE. [Concomitant]
     Active Substance: BUDESONIDE
  9. HYDROCORTISONE. [Concomitant]
     Active Substance: HYDROCORTISONE
  10. ALTEPLASE. [Concomitant]
     Active Substance: ALTEPLASE
  11. PARACETAMOL [Concomitant]
     Active Substance: ACETAMINOPHEN
  12. CHOLECALCIFEROL [Concomitant]
     Active Substance: CHOLECALCIFEROL

REACTIONS (1)
  - Crohn^s disease [Recovered/Resolved]

NARRATIVE: CASE EVENT DATE: 20191220
